FAERS Safety Report 8978879 (Version 3)
Quarter: 2013Q1

REPORT INFORMATION
  Report Type: Spontaneous
  Country: PR (occurrence: PR)
  Receive Date: 20121221
  Receipt Date: 20130207
  Transmission Date: 20140127
  Serious: Yes (Hospitalization, Other)
  Sender: FDA-Public Use
  Company Number: PR-BAYER-2012-132313

PATIENT
  Age: 70 Year
  Sex: Male

DRUGS (2)
  1. NEXAVAR [Suspect]
     Indication: HEPATIC CANCER
     Dosage: TOTAL DAILY DOSE 800 MG  (2 X 400 MG)
     Route: 048
     Dates: start: 20121030
  2. ANTIBIOTICS [Concomitant]

REACTIONS (4)
  - Oral surgery [None]
  - Nutritional supplementation [None]
  - Generalised oedema [None]
  - Oedema [None]
